FAERS Safety Report 23788041 (Version 1)
Quarter: 2024Q2

REPORT INFORMATION
  Report Type: Spontaneous
  Country: US (occurrence: US)
  Receive Date: 20240426
  Receipt Date: 20240426
  Transmission Date: 20240716
  Serious: No
  Sender: FDA-Public Use
  Company Number: US-TARO PHARMACEUTICALS USA INC.-2023TAR00378

PATIENT

DRUGS (1)
  1. FLUOROURACIL [Suspect]
     Active Substance: FLUOROURACIL
     Indication: Precancerous condition
     Dosage: UNK, BID, TO THE LEFT CHEEK AREA AND BOTH HANDS
     Route: 061
     Dates: start: 20230304, end: 20230322

REACTIONS (3)
  - Skin haemorrhage [Not Recovered/Not Resolved]
  - Application site erythema [Not Recovered/Not Resolved]
  - Skin erosion [Not Recovered/Not Resolved]
